FAERS Safety Report 9817167 (Version 2)
Quarter: 2014Q1

REPORT INFORMATION
  Report Type: Spontaneous
  Country: US (occurrence: US)
  Receive Date: 20140114
  Receipt Date: 20140114
  Transmission Date: 20141002
  Serious: Yes (Other)
  Sender: FDA-Public Use
  Company Number: US-GE HEALTHCARE MEDICAL DIAGNOSTICS-OSCN-PR-0810S-0576

PATIENT
  Age: 45 Year
  Sex: Female

DRUGS (4)
  1. OMNISCAN [Suspect]
     Indication: PRODUCT USED FOR UNKNOWN INDICATION
     Dates: start: 20000802, end: 20000802
  2. OMNISCAN [Suspect]
     Dates: start: 20010531, end: 20010531
  3. GADOLINIUM (UNSPECIFIED) [Suspect]
     Indication: PRODUCT USED FOR UNKNOWN INDICATION
     Dates: start: 20000816, end: 20000816
  4. MULTIHANCE [Suspect]
     Indication: PRODUCT USED FOR UNKNOWN INDICATION
     Dates: start: 20070719, end: 20070719

REACTIONS (1)
  - Nephrogenic systemic fibrosis [Not Recovered/Not Resolved]
